FAERS Safety Report 8593215-2 (Version None)
Quarter: 2012Q3

REPORT INFORMATION
  Report Type: 
  Country: None (occurrence: None)
  Receive Date: 20120814
  Receipt Date: 20120807
  Transmission Date: 20120928
  Serious: Yes (Hospitalization)
  Sender: FDA-Public Use
  Company Number: JP-VERTEX PHARMACEUTICALS INC.-AE-2012-011960

PATIENT
  Age: 50 Year
  Sex: Male

DRUGS (8)
  1. REBETOL [Concomitant]
     Indication: HEPATITIS C
     Route: 048
     Dates: start: 20120508, end: 20120528
  2. REBETOL [Concomitant]
     Route: 048
     Dates: start: 20120529, end: 20120604
  3. RIKKUNSHITO [Concomitant]
     Route: 048
     Dates: start: 20120508, end: 20120710
  4. REBETOL [Concomitant]
     Route: 048
     Dates: start: 20120605, end: 20120710
  5. LOXOPROFEN [Concomitant]
     Route: 048
     Dates: start: 20120508, end: 20120710
  6. PEG-INTRON [Concomitant]
     Route: 058
     Dates: start: 20120508, end: 20120710
  7. TELAVIC (TELAPREVIR) [Suspect]
     Indication: HEPATITIS C
     Route: 048
     Dates: start: 20120508, end: 20120710
  8. ALLEGRA [Concomitant]
     Route: 048
     Dates: start: 20120508, end: 20120710

REACTIONS (1)
  - PANCREATITIS ACUTE [None]
